FAERS Safety Report 13935674 (Version 1)
Quarter: 2017Q3

REPORT INFORMATION
  Report Type: Spontaneous
  Country: US (occurrence: US)
  Receive Date: 20170902
  Receipt Date: 20170902
  Transmission Date: 20171127
  Serious: Yes (Disabling)
  Sender: FDA-Public Use
  Company Number: None

PATIENT
  Age: 64 Year
  Sex: Female
  Weight: 72 kg

DRUGS (12)
  1. LORATADINE. [Concomitant]
     Active Substance: LORATADINE
  2. ZOLPIDEM [Concomitant]
     Active Substance: ZOLPIDEM\ZOLPIDEM TARTRATE
  3. PLANT SUPPLEMENTS (JUICE PLUS) [Concomitant]
  4. VITAMIN D [Concomitant]
     Active Substance: CHOLECALCIFEROL
  5. SLEEP AID [Concomitant]
     Active Substance: DIPHENHYDRAMINE HYDROCHLORIDE\DOXYLAMINE SUCCINATE
  6. ESTRADIOL. [Concomitant]
     Active Substance: ESTRADIOL
  7. XANAX [Suspect]
     Active Substance: ALPRAZOLAM
     Indication: SLEEP DISORDER
     Dosage: ?          QUANTITY:40 TABLET(S);?
     Route: 048
     Dates: start: 20050811, end: 20170902
  8. OXYCODONE [Concomitant]
     Active Substance: OXYCODONE
  9. BETA BLOCKER [Concomitant]
     Active Substance: UNSPECIFIED INGREDIENT
  10. SPIRONOLACTONE. [Concomitant]
     Active Substance: SPIRONOLACTONE
  11. MELATONIN [Concomitant]
     Active Substance: MELATONIN
  12. MUCINEX D [Concomitant]
     Active Substance: GUAIFENESIN\PSEUDOEPHEDRINE HYDROCHLORIDE

REACTIONS (13)
  - Palpitations [None]
  - Hyperhidrosis [None]
  - Insomnia [None]
  - Impaired driving ability [None]
  - Influenza [None]
  - Withdrawal syndrome [None]
  - Drug tolerance [None]
  - Nausea [None]
  - Anxiety [None]
  - Loss of personal independence in daily activities [None]
  - Drug monitoring procedure not performed [None]
  - Tremor [None]
  - Drug ineffective [None]

NARRATIVE: CASE EVENT DATE: 20170811
